FAERS Safety Report 18461816 (Version 1)
Quarter: 2020Q4

REPORT INFORMATION
  Report Type: Spontaneous
  Country: US (occurrence: US)
  Receive Date: 20201103
  Receipt Date: 20201103
  Transmission Date: 20210114
  Serious: Yes (Hospitalization)
  Sender: FDA-Public Use
  Company Number: None

PATIENT
  Age: 71 Year
  Sex: Female
  Weight: 66.6 kg

DRUGS (17)
  1. TEMAZEPAM. [Concomitant]
     Active Substance: TEMAZEPAM
  2. LOSARTAN. [Concomitant]
     Active Substance: LOSARTAN
  3. TRAZODONE [Concomitant]
     Active Substance: TRAZODONE HYDROCHLORIDE
  4. MIRALAX [Concomitant]
     Active Substance: POLYETHYLENE GLYCOL 3350
  5. VIT D [Concomitant]
     Active Substance: VITAMIN D NOS
  6. BABY ASPIRIN [Concomitant]
     Active Substance: ASPIRIN
  7. TRAMADOL. [Concomitant]
     Active Substance: TRAMADOL
  8. TOPIRAMATE. [Concomitant]
     Active Substance: TOPIRAMATE
  9. ALLEGRA [Concomitant]
     Active Substance: FEXOFENADINE HYDROCHLORIDE
  10. CYMBALTA [Concomitant]
     Active Substance: DULOXETINE HYDROCHLORIDE
  11. MULTIVITAMIN [Concomitant]
     Active Substance: VITAMINS
  12. NASACORT [Concomitant]
     Active Substance: TRIAMCINOLONE ACETONIDE
  13. HYDROXYZINE HYDROCHLORIDE. [Suspect]
     Active Substance: HYDROXYZINE HYDROCHLORIDE
     Indication: PRURITUS
     Route: 048
     Dates: start: 20200922, end: 20201030
  14. PANTOPRAZOLE [Concomitant]
     Active Substance: PANTOPRAZOLE
  15. TIZANIDINE. [Concomitant]
     Active Substance: TIZANIDINE
  16. LEVOTHYROXINE. [Concomitant]
     Active Substance: LEVOTHYROXINE
  17. OXYBUTIN [Concomitant]
     Active Substance: OXYBUTYNIN

REACTIONS (11)
  - Sleep disorder [None]
  - Gait disturbance [None]
  - Hypophagia [None]
  - Throat irritation [None]
  - Lung disorder [None]
  - Rash [None]
  - Speech disorder [None]
  - Feeling hot [None]
  - Dyskinesia [None]
  - Formication [None]
  - Hallucination, tactile [None]

NARRATIVE: CASE EVENT DATE: 20201030
